FAERS Safety Report 5127397-1 (Version None)
Quarter: 2006Q4

REPORT INFORMATION
  Report Type: 
  Country: None (occurrence: None)
  Receive Date: 20061013
  Receipt Date: 20061013
  Transmission Date: 20070319
  Serious: No
  Sender: FDA-Public Use
  Company Number: None

PATIENT
  Age: 77 Year

DRUGS (1)
  1. ERLOTINIB; TARCEVA; OSI PHARMS; ANTINEOPLASTICS; [Suspect]
     Indication: NON-SMALL CELL LUNG CANCER
     Dosage: ORAL; 0;0
     Route: 048

REACTIONS (8)
  - ERYTHEMA [None]
  - INTERTRIGO [None]
  - LICHENIFICATION [None]
  - MUCOSAL INFLAMMATION [None]
  - PRURITUS [None]
  - SKIN EROSION [None]
  - SKIN EXFOLIATION [None]
  - XEROSIS [None]
